FAERS Safety Report 15134781 (Version 4)
Quarter: 2018Q4

REPORT INFORMATION
  Report Type: Report from Study
  Country: UY (occurrence: UY)
  Receive Date: 20180712
  Receipt Date: 20181204
  Transmission Date: 20190204
  Serious: Yes (Other)
  Sender: FDA-Public Use
  Company Number: UY-SA-2018SA126782

PATIENT
  Age: 29 Year
  Sex: Male
  Weight: 74.5 kg

DRUGS (3)
  1. NOVORAPID [Suspect]
     Active Substance: INSULIN ASPART
     Indication: LATENT AUTOIMMUNE DIABETES IN ADULTS
     Dosage: 15-20 U
  2. INSULIN GLARGINE [Suspect]
     Active Substance: INSULIN GLARGINE
     Indication: LATENT AUTOIMMUNE DIABETES IN ADULTS
     Dosage: 18 IU,QD
     Route: 051
     Dates: start: 20180215
  3. PREDNISONE. [Suspect]
     Active Substance: PREDNISONE
     Dosage: 20 MG, QD
     Dates: start: 20180418, end: 20180428

REACTIONS (3)
  - Hyperglycaemia [Recovered/Resolved]
  - Lung abscess [Recovering/Resolving]
  - Tuberculosis [Unknown]

NARRATIVE: CASE EVENT DATE: 20180418
